FAERS Safety Report 8311197-5 (Version None)
Quarter: 2012Q2

REPORT INFORMATION
  Report Type: 
  Country: None (occurrence: None)
  Receive Date: 20120425
  Receipt Date: 20120418
  Transmission Date: 20120825
  Serious: Yes (Life-Threatening, Other)
  Sender: FDA-Public Use
  Company Number: ZA-JNJFOC-20061002875

PATIENT
  Sex: Female
  Weight: 75.6 kg

DRUGS (8)
  1. SINUMAX ALLERGY SINUS [Concomitant]
     Route: 048
     Dates: start: 20060922, end: 20060929
  2. DARUNAVIR ETHANOLATE [Suspect]
     Route: 048
  3. DARUNAVIR ETHANOLATE [Suspect]
     Indication: HIV INFECTION
     Route: 048
     Dates: start: 20060908, end: 20061011
  4. DRIXINE NASAL SPRAY [Concomitant]
     Dosage: 2 SPRAYS EACH NOSTRIL
     Route: 045
     Dates: start: 20060922, end: 20060929
  5. RITONAVIR [Suspect]
     Indication: HIV INFECTION
     Route: 048
     Dates: start: 20060908, end: 20061011
  6. LEGALON [Concomitant]
     Indication: HEPATITIS
     Route: 048
     Dates: start: 20060522
  7. CIPLA ACTIN [Concomitant]
     Route: 048
     Dates: start: 20060922, end: 20060930
  8. TRUVADA [Concomitant]
     Indication: HIV INFECTION
     Route: 048
     Dates: start: 20060908, end: 20061011

REACTIONS (1)
  - TRANSAMINASES INCREASED [None]
